FAERS Safety Report 21920753 (Version 2)
Quarter: 2023Q1

REPORT INFORMATION
  Report Type: Report from Study
  Country: ES (occurrence: None)
  Receive Date: 20230127
  Receipt Date: 20230201
  Transmission Date: 20230418
  Serious: Yes (Life-Threatening, Hospitalization)
  Sender: FDA-Public Use
  Company Number: ES-ROCHE-3270911

PATIENT
  Age: 69 Year
  Sex: Female
  Weight: 68.7 kg

DRUGS (13)
  1. TOCILIZUMAB [Suspect]
     Active Substance: TOCILIZUMAB
     Indication: Plasma cell myeloma
     Dosage: ON 15/JUL/2022 IS THE MOST RECENT DOSE OF STUDY DRUG PRIOR TO AE IS 500 MG
     Route: 042
     Dates: start: 20220715
  2. CEVOSTAMAB [Suspect]
     Active Substance: CEVOSTAMAB
     Indication: Plasma cell myeloma
     Dosage: ON 10/NOV/2022 IS THE MOST RECENT DOSE OF STUDY DRUG PRIOR TO AE IS 90 MG
     Route: 042
     Dates: start: 20220713
  3. OMEPRAZOLE [Concomitant]
     Active Substance: OMEPRAZOLE
     Route: 048
  4. ACYCLOVIR [Concomitant]
     Active Substance: ACYCLOVIR
     Route: 048
  5. FENTANYL [Concomitant]
     Active Substance: FENTANYL
     Indication: Bone pain
     Route: 062
  6. RAMIPRIL [Concomitant]
     Active Substance: RAMIPRIL
     Indication: Hypertension
     Route: 048
  7. PITAVASTATIN CALCIUM [Concomitant]
     Active Substance: PITAVASTATIN CALCIUM
     Indication: Hyperlipidaemia
     Route: 048
     Dates: start: 20220723
  8. ASCORBIC ACID\POTASSIUM BICARBONATE [Concomitant]
     Active Substance: ASCORBIC ACID\POTASSIUM BICARBONATE
     Dosage: 1 TABLET
     Route: 048
  9. ALUMINUM HYDROXIDE [Concomitant]
     Active Substance: ALUMINUM HYDROXIDE
     Dosage: 1 TABLET
     Route: 048
  10. ASPIRIN [Concomitant]
     Active Substance: ASPIRIN
     Route: 048
  11. ACETAMINOPHEN [Concomitant]
     Active Substance: ACETAMINOPHEN
     Indication: Bone pain
     Route: 048
     Dates: start: 20220723
  12. SPIRONOLACTONE [Concomitant]
     Active Substance: SPIRONOLACTONE
     Indication: Hypertension
     Route: 048
  13. SULFAMETHOXAZOLE\TRIMETHOPRIM [Concomitant]
     Active Substance: SULFAMETHOXAZOLE\TRIMETHOPRIM
     Dosage: 1 TABLET
     Route: 048

REACTIONS (1)
  - Procedural pneumothorax [Recovering/Resolving]

NARRATIVE: CASE EVENT DATE: 20230122
